FAERS Safety Report 8600496-5 (Version None)
Quarter: 2012Q3

REPORT INFORMATION
  Report Type: 
  Country: None (occurrence: None)
  Receive Date: 20120808
  Receipt Date: 20120808
  Transmission Date: 20120928
  Serious: Yes (Life-Threatening)
  Sender: FDA-Public Use
  Company Number: None

PATIENT
  Age: 71 Year
  Sex: Female
  Weight: 68.0396 kg

DRUGS (1)
  1. AZITHROMYCIN [Suspect]
     Indication: SINUSITIS
     Dosage: 2 PILLS 1ST DAY 7/12/12 ; 1 PILL 4 MORE D ON 16/12/12 1ST DOSE 500 - 250 - 4 DAYS
     Dates: start: 20120712, end: 20120716

REACTIONS (3)
  - MUSCULOSKELETAL DISORDER [None]
  - ABDOMINAL PAIN UPPER [None]
  - MOVEMENT DISORDER [None]
